FAERS Safety Report 16718376 (Version 1)
Quarter: 2019Q3

REPORT INFORMATION
  Report Type: Spontaneous
  Country: AU (occurrence: AU)
  Receive Date: 20190820
  Receipt Date: 20190820
  Transmission Date: 20191005
  Serious: Yes (Other)
  Sender: FDA-Public Use
  Company Number: AU-BEH-2019105677

PATIENT
  Age: 60 Year
  Sex: Female

DRUGS (1)
  1. PRIVIGEN [Suspect]
     Active Substance: HUMAN IMMUNOGLOBULIN G
     Indication: MYASTHENIA GRAVIS
     Dosage: 70 GRAM, TOT
     Route: 065
     Dates: start: 20190806

REACTIONS (2)
  - Meningitis aseptic [Unknown]
  - Headache [Unknown]

NARRATIVE: CASE EVENT DATE: 20190806
